FAERS Safety Report 23182730 (Version 5)
Quarter: 2024Q2

REPORT INFORMATION
  Report Type: Spontaneous
  Country: IN (occurrence: IN)
  Receive Date: 20231114
  Receipt Date: 20240626
  Transmission Date: 20240716
  Serious: Yes (Other)
  Sender: FDA-Public Use
  Company Number: IN-PFIZER INC-PV202300072123

PATIENT
  Age: 63 Year
  Sex: Female

DRUGS (21)
  1. PALBOCICLIB [Suspect]
     Active Substance: PALBOCICLIB
     Dosage: OD X 21 DAYS F/B GAP OF 7 DAYS X21DAYS X 2 MONTHS
     Route: 048
     Dates: start: 20220328
  2. EXEMESTANE [Concomitant]
     Active Substance: EXEMESTANE
     Dosage: 25 MG, 1X/DAY X 2 MONTHS
  3. NEWCAL D3 [Concomitant]
     Dosage: 1 DF, 1X/DAY FOR 2 MONTHS
  4. CALCIUM\CHOLECALCIFEROL [Concomitant]
     Active Substance: CALCIUM\CHOLECALCIFEROL
     Dosage: UNK, WEEKLY
  5. FEZA [Concomitant]
     Dosage: 1 DF, 1X/DAY
  6. ACETAMINOPHEN [Concomitant]
     Active Substance: ACETAMINOPHEN
     Dosage: 500 MG, AS NEEDED X 2 MONTHS
  7. METFORMIN [Concomitant]
     Active Substance: METFORMIN HYDROCHLORIDE
     Indication: Diabetes mellitus
     Dosage: 500 MG, 1X/DAY
  8. TENELIGLIPTIN [Concomitant]
     Active Substance: TENELIGLIPTIN
     Indication: Diabetes mellitus
     Dosage: 20 MG, 1X/DAY
  9. ZOLEBENZ [Concomitant]
  10. NEUROBION FORTE [CALCIUM PANTOTHENATE;CYANOCOBALAMIN;NICOTINAMIDE;PYRI [Concomitant]
     Dosage: UNK UNK, 1X/DAY X 2 MONTHS
  11. CALCIUM ASCORBATE [Concomitant]
     Active Substance: CALCIUM ASCORBATE
     Dosage: UNK UNK, 1X/DAY X 2 MONTHS
  12. MAGNESIUM [Concomitant]
     Active Substance: MAGNESIUM
     Dosage: UNK UNK, 1X/DAY X 2 MONTHS
  13. VITAMIN D3 [Concomitant]
     Active Substance: CHOLECALCIFEROL
     Dosage: UNK UNK, 1X/DAY X 2 MONTHS
  14. PIROXICAM [Concomitant]
     Active Substance: PIROXICAM
     Dosage: UNK UNK, 1X/DAY X 2 MONTHS
  15. GLIMEPIRIDE [Concomitant]
     Active Substance: GLIMEPIRIDE
     Dosage: 1 MG, 1X/DAY X 2 MONTHS
  16. DAPAGLIFLOZIN [Concomitant]
     Active Substance: DAPAGLIFLOZIN
     Dosage: 10 MG
  17. SITAGLIPTIN [Concomitant]
     Active Substance: SITAGLIPTIN
     Dosage: 100 MG OD X 2 MONTHS
  18. METFORMIN HYDROCHLORIDE [Concomitant]
     Active Substance: METFORMIN HYDROCHLORIDE
     Dosage: 500 MG, OD X 2 MONTHS
  19. HYDROCHLOROTHIAZIDE [Concomitant]
     Active Substance: HYDROCHLOROTHIAZIDE
     Dosage: X 2 MONTHS
  20. OMEPRAZOLE [Concomitant]
     Active Substance: DONEPEZIL HYDROCHLORIDE\OMEPRAZOLE\OMEPRAZOLE MAGNESIUM
     Dosage: OD/SOS X 2 MONTHS
  21. HEME IRON POLYPEPTIDE [Concomitant]
     Dosage: OD X 2 MONTHS

REACTIONS (6)
  - Neuropathy peripheral [Unknown]
  - Osteoarthritis [Unknown]
  - Hypertension [Unknown]
  - Dry eye [Unknown]
  - Anaemia [Unknown]
  - Osteoporosis [Unknown]

NARRATIVE: CASE EVENT DATE: 20240125
